FAERS Safety Report 23978480 (Version 1)
Quarter: 2024Q2

REPORT INFORMATION
  Report Type: Spontaneous
  Country: US (occurrence: US)
  Receive Date: 20240614
  Receipt Date: 20240614
  Transmission Date: 20240716
  Serious: No
  Sender: FDA-Public Use
  Company Number: US-Calliditas-2024CAL00972

PATIENT
  Age: 72 Year
  Sex: Male
  Weight: 85.9 kg

DRUGS (1)
  1. TARPEYO [Suspect]
     Active Substance: BUDESONIDE
     Indication: IgA nephropathy
     Route: 048
     Dates: start: 20240322

REACTIONS (4)
  - Anal incontinence [Unknown]
  - Asthenia [Unknown]
  - Fatigue [Unknown]
  - Mood altered [Unknown]

NARRATIVE: CASE EVENT DATE: 20240603
